FAERS Safety Report 20468351 (Version 3)
Quarter: 2022Q1

REPORT INFORMATION
  Report Type: Report from Study
  Country: ES (occurrence: ES)
  Receive Date: 20220214
  Receipt Date: 20220321
  Transmission Date: 20220423
  Serious: Yes (Hospitalization, Other)
  Sender: FDA-Public Use
  Company Number: ES-BRISTOL-MYERS SQUIBB COMPANY-BMS-2022-009406

PATIENT
  Age: 82 Year
  Sex: Female
  Weight: 51 kg

DRUGS (9)
  1. NIVOLUMAB [Suspect]
     Active Substance: NIVOLUMAB
     Indication: Squamous cell carcinoma of head and neck
     Dosage: 240 MILLIGRAM
     Route: 042
     Dates: start: 20210818
  2. PACLITAXEL [Suspect]
     Active Substance: PACLITAXEL
     Indication: Squamous cell carcinoma of head and neck
     Dosage: 118 MILLIGRAM
     Route: 042
     Dates: start: 20210818
  3. MOXIFLOXACIN [Suspect]
     Active Substance: MOXIFLOXACIN
     Indication: Infection
     Dosage: 400 MILLIGRAM
     Route: 048
     Dates: start: 20220114, end: 20220118
  4. NIVOLUMAB [Suspect]
     Active Substance: NIVOLUMAB
     Indication: Squamous cell carcinoma of head and neck
     Dosage: 240 MILLIGRAM
     Route: 042
     Dates: start: 20210818
  5. SIMVASTATIN [Concomitant]
     Active Substance: SIMVASTATIN
     Indication: Dyslipidaemia
     Dosage: 20 MILLIGRAM
     Route: 048
  6. PREGABALIN [Concomitant]
     Active Substance: PREGABALIN
     Indication: Pain
     Dosage: 75 MILLIGRAM
     Route: 048
  7. FENTANYL [Concomitant]
     Active Substance: FENTANYL
     Indication: Pain
     Dosage: 12 MICROGRAM PATCH
     Route: 062
     Dates: start: 202105
  8. SULFAMETHOXAZOLE\TRIMETHOPRIM [Concomitant]
     Active Substance: SULFAMETHOXAZOLE\TRIMETHOPRIM
     Indication: Infection
     Dosage: 40/8 MG/ML
     Route: 048
     Dates: start: 20220114
  9. TRYPTIZOL [Concomitant]
     Active Substance: AMITRIPTYLINE HYDROCHLORIDE
     Indication: Anxiety
     Dosage: 10 MILLIGRAM
     Route: 048

REACTIONS (4)
  - Immune-mediated hepatitis [Recovered/Resolved]
  - Pericarditis [Unknown]
  - Acute kidney injury [Recovered/Resolved]
  - Pericardial effusion [Unknown]

NARRATIVE: CASE EVENT DATE: 20220118
